FAERS Safety Report 22654094 (Version 2)
Quarter: 2025Q2

REPORT INFORMATION
  Report Type: Spontaneous
  Country: PT (occurrence: PT)
  Receive Date: 20230629
  Receipt Date: 20250605
  Transmission Date: 20250716
  Serious: Yes (Other)
  Sender: AUROBINDO
  Company Number: PT-TEVA-2023-PT-2896240

PATIENT
  Age: 42 Year
  Sex: Female

DRUGS (2)
  1. ESCITALOPRAM [Suspect]
     Active Substance: ESCITALOPRAM OXALATE
     Indication: Depression
     Route: 048
  2. VENLAFAXINE [Suspect]
     Active Substance: VENLAFAXINE HYDROCHLORIDE
     Indication: Depression
     Route: 048

REACTIONS (11)
  - Nystagmus [Unknown]
  - Pyrexia [Unknown]
  - Serotonin syndrome [Recovered/Resolved]
  - Myoclonus [Unknown]
  - Hypophosphataemia [Unknown]
  - Hyperhidrosis [Unknown]
  - Tremor [Unknown]
  - Electrocardiogram QT prolonged [Unknown]
  - Clonus [Unknown]
  - Vomiting [Unknown]
  - Intentional overdose [Unknown]
